FAERS Safety Report 18653549 (Version 1)
Quarter: 2020Q4

REPORT INFORMATION
  Report Type: Spontaneous
  Country: US (occurrence: US)
  Receive Date: 20201222
  Receipt Date: 20201222
  Transmission Date: 20210114
  Serious: No
  Sender: FDA-Public Use
  Company Number: None

PATIENT
  Age: 49 Year
  Sex: Female
  Weight: 75.6 kg

DRUGS (4)
  1. MVI [Concomitant]
     Active Substance: VITAMINS
  2. IBUPROFEN. [Concomitant]
     Active Substance: IBUPROFEN
  3. LASIX [Concomitant]
     Active Substance: FUROSEMIDE
  4. ALECENSA [Suspect]
     Active Substance: ALECTINIB HYDROCHLORIDE
     Indication: LUNG NEOPLASM MALIGNANT
     Route: 048
     Dates: start: 20201130

REACTIONS (3)
  - Back pain [None]
  - Fluid retention [None]
  - Oedema [None]

NARRATIVE: CASE EVENT DATE: 20201222
